FAERS Safety Report 15433069 (Version 2)
Quarter: 2019Q3

REPORT INFORMATION
  Report Type: Spontaneous
  Country: AU (occurrence: AU)
  Receive Date: 20180927
  Receipt Date: 20190923
  Transmission Date: 20191004
  Serious: No
  Sender: FDA-Public Use
  Company Number: AU-NOVEN PHARMACEUTICALS, INC.-AU2018000455

PATIENT

DRUGS (1)
  1. ESTRADIOL/NORETHISTERONE ACETATE [Suspect]
     Active Substance: ESTRADIOL\NORETHINDRONE ACETATE
     Indication: PRODUCT USED FOR UNKNOWN INDICATION
     Dosage: 30 MG, UNKNOWN
     Route: 062

REACTIONS (4)
  - Skin reaction [Unknown]
  - Pruritus [Unknown]
  - Application site erythema [Unknown]
  - Product adhesion issue [Unknown]
